FAERS Safety Report 20193531 (Version 1)
Quarter: 2021Q4

REPORT INFORMATION
  Report Type: Spontaneous
  Country: JP (occurrence: JP)
  Receive Date: 20211216
  Receipt Date: 20211216
  Transmission Date: 20220303
  Serious: Yes (Other)
  Sender: FDA-Public Use
  Company Number: JP-DSJP-DSJ-2021-141163

PATIENT
  Age: 65 Year
  Sex: Female

DRUGS (2)
  1. DENOSUMAB [Suspect]
     Active Substance: DENOSUMAB
     Indication: Product used for unknown indication
     Dosage: UNK
     Route: 065
  2. IBRANCE [Suspect]
     Active Substance: PALBOCICLIB
     Indication: Product used for unknown indication
     Dosage: 100MG/DAY
     Route: 048

REACTIONS (4)
  - Neutrophil count decreased [Unknown]
  - Osteonecrosis of jaw [Unknown]
  - White blood cell count decreased [Unknown]
  - Neoplasm progression [Unknown]
